FAERS Safety Report 10029475 (Version 3)
Quarter: 2014Q2

REPORT INFORMATION
  Report Type: Spontaneous
  Country: CA (occurrence: CA)
  Receive Date: 20140322
  Receipt Date: 20140402
  Transmission Date: 20141212
  Serious: Yes (Other)
  Sender: FDA-Public Use
  Company Number: CA-ROCHE-1366853

PATIENT
  Age: 46 Year
  Sex: Female

DRUGS (5)
  1. HERCEPTIN [Suspect]
     Indication: BREAST CANCER
     Route: 042
     Dates: start: 201111, end: 201207
  2. HERCEPTIN [Suspect]
     Route: 042
     Dates: start: 201402
  3. CAPECITABINE [Concomitant]
     Route: 065
     Dates: start: 201308, end: 201308
  4. PACLITAXEL [Concomitant]
     Route: 065
     Dates: start: 201304, end: 201304
  5. GEMCITABINE [Concomitant]

REACTIONS (1)
  - Neoplasm [Not Recovered/Not Resolved]
